FAERS Safety Report 7115284-9 (Version None)
Quarter: 2010Q4

REPORT INFORMATION
  Report Type: 
  Country: None (occurrence: None)
  Receive Date: 20101117
  Receipt Date: 20101117
  Transmission Date: 20110411
  Serious: Yes (Other)
  Sender: FDA-Public Use
  Company Number: None

PATIENT
  Sex: Male
  Weight: 68.0396 kg

DRUGS (2)
  1. FINASTERIDE [Suspect]
     Indication: ALOPECIA
     Dosage: 1 MG DAILY PO
     Route: 048
     Dates: start: 20101022, end: 20101114
  2. FINASTERIDE [Suspect]
     Indication: PROPHYLAXIS
     Dosage: 1 MG DAILY PO
     Route: 048
     Dates: start: 20101022, end: 20101114

REACTIONS (1)
  - ERECTILE DYSFUNCTION [None]
